FAERS Safety Report 15011480 (Version 1)
Quarter: 2018Q2

REPORT INFORMATION
  Report Type: Spontaneous
  Country: None (occurrence: US)
  Receive Date: 20180614
  Receipt Date: 20180614
  Transmission Date: 20180711
  Serious: No
  Sender: FDA-Public Use
  Company Number: US-MEDAC PHARMA, INC.-2049424

PATIENT
  Sex: Female
  Weight: 100 kg

DRUGS (1)
  1. RASUVO [Suspect]
     Active Substance: METHOTREXATE SODIUM
     Indication: RHEUMATOID ARTHRITIS
     Dates: start: 20170517

REACTIONS (7)
  - Fatigue [Recovered/Resolved]
  - Stomatitis [Recovering/Resolving]
  - Myalgia [Unknown]
  - Asthenia [Unknown]
  - Alopecia [Recovering/Resolving]
  - Feeling abnormal [Unknown]
  - Cheilitis [Recovering/Resolving]

NARRATIVE: CASE EVENT DATE: 2018
